FAERS Safety Report 4851948-5 (Version None)
Quarter: 2005Q4

REPORT INFORMATION
  Report Type: 
  Country: None (occurrence: None)
  Receive Date: 20051208
  Receipt Date: 20051205
  Transmission Date: 20060501
  Serious: Yes (Disabling)
  Sender: FDA-Public Use
  Company Number: GBWYE205805DEC05

PATIENT
  Age: 48 Year
  Sex: Female

DRUGS (5)
  1. BENZHEXOL (TRIHEXYPHENIDYL, UNSPEC, 0) [Suspect]
     Indication: MOVEMENT DISORDER
     Dosage: 2 MG,  ORAL
     Route: 048
     Dates: start: 20051116, end: 20051120
  2. BACLOFEN [Concomitant]
  3. AMITRIPTYLINE HCL [Concomitant]
  4. CO-DYDRAMOL (DIHYDROCODEINE BITARTRATE/PARACETAMOL) [Concomitant]
  5. LANSOPRAZOLE [Concomitant]

REACTIONS (1)
  - SPEECH DISORDER [None]
